FAERS Safety Report 8286785-5 (Version None)
Quarter: 2012Q2

REPORT INFORMATION
  Report Type: 
  Country: None (occurrence: None)
  Receive Date: 20120416
  Receipt Date: 20120406
  Transmission Date: 20120825
  Serious: Yes (Death)
  Sender: FDA-Public Use
  Company Number: JP-AMGEN-JPNCT2012017321

PATIENT
  Age: 67 Year
  Sex: Male
  Weight: 40 kg

DRUGS (9)
  1. ALOXI [Concomitant]
     Indication: COLORECTAL CANCER
     Route: 041
     Dates: start: 20111026, end: 20120222
  2. OXALIPLATIN [Suspect]
     Indication: COLORECTAL CANCER
     Dosage: 125 MG, Q2WK
     Route: 041
     Dates: start: 20111026, end: 20120222
  3. MINOCYCLINE HYDROCHLORIDE [Suspect]
     Indication: RASH
     Route: 048
     Dates: start: 20111026, end: 20120306
  4. CYCLOPHOSPHAMIDE [Suspect]
  5. DECADRON [Concomitant]
     Indication: COLORECTAL CANCER
     Route: 041
     Dates: start: 20111026, end: 20120222
  6. PANITUMUMAB [Suspect]
     Indication: COLORECTAL CANCER
     Dosage: UNK, Q2WK
     Route: 041
     Dates: start: 20111026, end: 20120222
  7. FLUOROURACIL [Suspect]
     Indication: COLORECTAL CANCER
     Route: 041
     Dates: start: 20111026, end: 20120222
  8. LEUCOVORIN CALCIUM [Concomitant]
     Indication: COLORECTAL CANCER
     Route: 041
     Dates: start: 20111026
  9. LEVOLEUCOVORIN CALCIUM [Concomitant]
     Indication: COLORECTAL CANCER
     Route: 041
     Dates: start: 20111026, end: 20120222

REACTIONS (1)
  - INTERSTITIAL LUNG DISEASE [None]
